FAERS Safety Report 5125157-9 (Version None)
Quarter: 2006Q4

REPORT INFORMATION
  Report Type: 
  Country: None (occurrence: None)
  Receive Date: 20061006
  Receipt Date: 20060925
  Transmission Date: 20070319
  Serious: Yes (Hospitalization)
  Sender: FDA-Public Use
  Company Number: S06-FRA-02612-01

PATIENT
  Age: 47 Year
  Sex: Male

DRUGS (4)
  1. SEROPLEX (ESCITALOPRAM) [Suspect]
     Indication: DYSTHYMIC DISORDER
     Dosage: 25 TABLET ONCE PO
     Route: 048
     Dates: start: 20060501, end: 20060501
  2. SEROPLEX (ESCITALOPRAM) [Suspect]
     Indication: DYSTHYMIC DISORDER
     Dosage: 1.5 UNITS QD PO
     Route: 048
     Dates: start: 20060131, end: 20060501
  3. SEROPLEX (ESCITALOPRAM) [Suspect]
     Indication: DYSTHYMIC DISORDER
     Dates: end: 20060609
  4. OMEPRAZOLE [Concomitant]

REACTIONS (7)
  - EMPHYSEMA [None]
  - GAS POISONING [None]
  - INTENTIONAL OVERDOSE [None]
  - INTENTIONAL SELF-INJURY [None]
  - INTERSTITIAL LUNG DISEASE [None]
  - PLEURAL EFFUSION [None]
  - SUICIDE ATTEMPT [None]
